FAERS Safety Report 24104064 (Version 2)
Quarter: 2024Q3

REPORT INFORMATION
  Report Type: Spontaneous
  Country: GB (occurrence: GB)
  Receive Date: 20240717
  Receipt Date: 20240729
  Transmission Date: 20241017
  Serious: Yes (Congenital Anomaly, Other)
  Sender: ACCORD
  Company Number: None

PATIENT
  Age: 0 Day
  Sex: Female

DRUGS (2)
  1. TOPIRAMATE [Suspect]
     Active Substance: TOPIRAMATE
     Indication: Adverse drug reaction
     Dosage: 50
     Dates: start: 20110105
  2. TOPIRAMATE [Suspect]
     Active Substance: TOPIRAMATE
     Indication: Adverse drug reaction
     Dosage: 50
     Dates: start: 2010

REACTIONS (4)
  - Medication error [Unknown]
  - Cleft lip [Not Recovered/Not Resolved]
  - Attention deficit hyperactivity disorder [Not Recovered/Not Resolved]
  - Foetal exposure during pregnancy [Unknown]

NARRATIVE: CASE EVENT DATE: 20100101
